FAERS Safety Report 8552384-0 (Version None)
Quarter: 2012Q3

REPORT INFORMATION
  Report Type: 
  Country: None (occurrence: None)
  Receive Date: 20120723
  Receipt Date: 20120723
  Transmission Date: 20120928
  Serious: Yes (Hospitalization, Other)
  Sender: FDA-Public Use
  Company Number: None

PATIENT
  Age: 35 Year
  Sex: Male
  Weight: 81.6475 kg

DRUGS (1)
  1. OTO-EASE WESTONE [Suspect]
     Indication: DIAGNOSTIC PROCEDURE
     Dates: start: 20120330, end: 20120507

REACTIONS (4)
  - SOMNOLENCE [None]
  - NAUSEA [None]
  - EAR INFECTION [None]
  - PAIN [None]
